FAERS Safety Report 8172994-2 (Version None)
Quarter: 2012Q1

REPORT INFORMATION
  Report Type: 
  Country: None (occurrence: None)
  Receive Date: 20120229
  Receipt Date: 20120222
  Transmission Date: 20120608
  Serious: Yes (Other)
  Sender: FDA-Public Use
  Company Number: JP-JNJFOC-20120212210

PATIENT
  Age: 77 Year
  Sex: Male

DRUGS (3)
  1. CHLORPHENIRAMINE MALEATE [Suspect]
     Indication: PRODUCT USED FOR UNKNOWN INDICATION
     Route: 065
  2. CLARITHROMYCIN [Suspect]
     Indication: INFECTIOUS PLEURAL EFFUSION
     Route: 048
     Dates: start: 20111124, end: 20111209
  3. DORIPENEM MONOHYDRATE [Suspect]
     Indication: INFECTIOUS PLEURAL EFFUSION
     Route: 041
     Dates: start: 20111129, end: 20111208

REACTIONS (2)
  - ANURIA [None]
  - URTICARIA [None]
